FAERS Safety Report 18184130 (Version 2)
Quarter: 2020Q3

REPORT INFORMATION
  Report Type: Report from Study
  Country: None (occurrence: DE)
  Receive Date: 20200823
  Receipt Date: 20200827
  Transmission Date: 20201103
  Serious: Yes (Hospitalization)
  Sender: FDA-Public Use
  Company Number: DE-ABBVIE-20K-062-3289096-00

PATIENT
  Age: 77 Year
  Sex: Male

DRUGS (6)
  1. DUODOPA [Suspect]
     Active Substance: CARBIDOPA\LEVODOPA
     Indication: PARKINSON^S DISEASE
     Dosage: MD 2.5ML, CRD 5.3ML/H, CRN 4.1ML/H, ED 1.0ML
     Route: 050
     Dates: start: 201502
  2. DUODOPA [Suspect]
     Active Substance: CARBIDOPA\LEVODOPA
     Dosage: MD 2.5 ML; CRD 5.4 ML/ H; CRN 4.2 ML/ H; ED 1.9 ML
     Route: 050
     Dates: start: 202008
  3. COMTESS [Concomitant]
     Active Substance: ENTACAPONE
     Indication: PRODUCT USED FOR UNKNOWN INDICATION
  4. CLOZAPIN [Concomitant]
     Active Substance: CLOZAPINE
     Indication: PRODUCT USED FOR UNKNOWN INDICATION
  5. DUODOPA [Suspect]
     Active Substance: CARBIDOPA\LEVODOPA
     Dosage: MD 2.5 ML; CRD 5.3 ML/ H; CRN 4.2 ML/ H; ED 1 ML
     Route: 050
  6. DUODOPA [Suspect]
     Active Substance: CARBIDOPA\LEVODOPA
     Dosage: MD 2.5ML, CRD 5.3ML/H, CRN 4.1ML/H, ED 1.0ML
     Route: 050
     Dates: end: 202008

REACTIONS (4)
  - Device dislocation [Recovering/Resolving]
  - Knee deformity [Recovering/Resolving]
  - Joint range of motion decreased [Not Recovered/Not Resolved]
  - Osteoporosis [Not Recovered/Not Resolved]

NARRATIVE: CASE EVENT DATE: 202001
